FAERS Safety Report 4494416-5 (Version None)
Quarter: 2004Q4

REPORT INFORMATION
  Report Type: 
  Country: None (occurrence: None)
  Receive Date: 20041104
  Receipt Date: 20041104
  Transmission Date: 20050328
  Serious: Yes (Life-Threatening)
  Sender: FDA-Public Use
  Company Number: None

PATIENT
  Age: 43 Year
  Sex: Female
  Weight: 93.441 kg

DRUGS (5)
  1. FENTANYL [Suspect]
     Indication: PAIN
     Dosage: 75 MCG IT X 1
     Route: 037
     Dates: start: 20040708
  2. TUMS [Concomitant]
  3. OXYTOCIN [Concomitant]
  4. LACTATED RINGER'S [Concomitant]
  5. CYTOTEC [Concomitant]

REACTIONS (3)
  - ANAESTHETIC COMPLICATION [None]
  - DYSPNOEA [None]
  - OROPHARYNGEAL SWELLING [None]
